FAERS Safety Report 9172199 (Version 4)
Quarter: 2013Q4

REPORT INFORMATION
  Report Type: Spontaneous
  Country: JP (occurrence: JP)
  Receive Date: 20130319
  Receipt Date: 20131106
  Transmission Date: 20140711
  Serious: No
  Sender: FDA-Public Use
  Company Number: JP-LUNDBECK-DKLU1089716

PATIENT
  Age: 1 Month
  Sex: Male

DRUGS (1)
  1. ONFI [Suspect]
     Indication: MATERNAL EXPOSURE TIMING UNSPECIFIED
     Route: 050
     Dates: end: 20130311

REACTIONS (3)
  - Poor weight gain neonatal [Recovering/Resolving]
  - Liver disorder [Recovering/Resolving]
  - Exposure during breast feeding [Recovering/Resolving]
